FAERS Safety Report 9459306 (Version 1)
Quarter: 2013Q3

REPORT INFORMATION
  Report Type: Spontaneous
  Country: ES (occurrence: ES)
  Receive Date: 20130815
  Receipt Date: 20130815
  Transmission Date: 20140515
  Serious: Yes (Other)
  Sender: FDA-Public Use
  Company Number: ES-ROCHE-1261375

PATIENT
  Age: 63 Year
  Sex: Male

DRUGS (3)
  1. BEVACIZUMAB [Suspect]
     Indication: ADENOCARCINOMA
     Route: 065
  2. CARBOPLATIN [Suspect]
     Indication: ADENOCARCINOMA
     Route: 065
  3. DOCETAXEL [Suspect]
     Indication: ADENOCARCINOMA
     Route: 065

REACTIONS (1)
  - Haematotoxicity [Unknown]
